FAERS Safety Report 7526522-2 (Version None)
Quarter: 2011Q2

REPORT INFORMATION
  Report Type: 
  Country: None (occurrence: None)
  Receive Date: 20110606
  Receipt Date: 20110603
  Transmission Date: 20111010
  Serious: Yes (Other)
  Sender: FDA-Public Use
  Company Number: JP-BAYER-2011-048118

PATIENT
  Age: 75 Year
  Sex: Male

DRUGS (12)
  1. PLAVIX [Concomitant]
     Indication: CEREBROVASCULAR ACCIDENT PROPHYLAXIS
     Dosage: DAILY DOSE 75 MG
     Route: 048
     Dates: end: 20110531
  2. SORAFENIB (RAF KINASE INHIBITOR) [Suspect]
     Indication: HEPATIC NEOPLASM MALIGNANT
     Dosage: 200 MG, QD
     Route: 048
     Dates: start: 20110414, end: 20110420
  3. FEROTYM [Concomitant]
     Dosage: DAILY DOSE 50 MG
     Route: 048
  4. SORAFENIB (RAF KINASE INHIBITOR) [Suspect]
     Dosage: 400 MG, QD
     Route: 048
     Dates: start: 20110420, end: 20110516
  5. CANDESARTAN CILEXETIL [Concomitant]
     Dosage: DAILY DOSE 8 MG
     Route: 048
  6. EPLERENONE [Concomitant]
     Dosage: DAILY DOSE 50 MG
     Route: 048
  7. RABEPRAZOLE SODIUM [Concomitant]
     Dosage: DAILY DOSE 10 MG
     Route: 048
  8. PURSENNID [Concomitant]
     Dosage: DAILY DOSE 12 MG
     Route: 048
  9. FUROSEMIDE [Concomitant]
     Dosage: DAILY DOSE 20 MG
     Route: 048
  10. MAINHEART [Concomitant]
     Dosage: DAILY DOSE 2.5 MG
     Route: 048
  11. WARFARIN SODIUM [Concomitant]
     Dosage: DAILY DOSE 2 MG
     Route: 048
     Dates: end: 20110531
  12. BROTIZOLAM [Concomitant]
     Dosage: DAILY DOSE .25 MG
     Route: 048

REACTIONS (5)
  - DYSPHONIA [None]
  - DIARRHOEA [None]
  - HYPERTENSION [None]
  - FAECES DISCOLOURED [None]
  - HAEMATOCHEZIA [None]
